FAERS Safety Report 11575129 (Version 1)
Quarter: 2015Q3

REPORT INFORMATION
  Report Type: Spontaneous
  Country: US (occurrence: US)
  Receive Date: 20150916
  Receipt Date: 20150916
  Transmission Date: 20151125
  Serious: No
  Sender: FDA-Public Use
  Company Number: US-ELI_LILLY_AND_COMPANY-US200911005358

PATIENT
  Sex: Male

DRUGS (5)
  1. CORTICOSTEROIDS [Concomitant]
     Active Substance: CORTICOSTEROID NOS
     Indication: MULTIPLE SCLEROSIS
     Dosage: UNK, EVERY TWO MONTHS
  2. INTERFERON BETA NOS [Concomitant]
     Active Substance: INTERFERON BETA
     Indication: MULTIPLE SCLEROSIS
  3. FORTEO [Suspect]
     Active Substance: TERIPARATIDE
     Dosage: UNK, UNKNOWN
  4. FORTEO [Suspect]
     Active Substance: TERIPARATIDE
     Indication: STEROID THERAPY
     Dosage: UNK, UNKNOWN
     Dates: start: 200806
  5. FORTEO [Suspect]
     Active Substance: TERIPARATIDE
     Dosage: UNK, UNKNOWN
     Dates: start: 2009

REACTIONS (3)
  - Bronchitis [Unknown]
  - Pyrexia [Unknown]
  - Neck mass [Unknown]

NARRATIVE: CASE EVENT DATE: 2008
